FAERS Safety Report 7214964-4 (Version None)
Quarter: 2011Q1

REPORT INFORMATION
  Report Type: 
  Country: None (occurrence: None)
  Receive Date: 20110107
  Receipt Date: 20100610
  Transmission Date: 20110831
  Serious: No
  Sender: FDA-Public Use
  Company Number: A0864314A

PATIENT
  Sex: Male

DRUGS (1)
  1. LOVAZA [Suspect]
     Route: 065

REACTIONS (2)
  - LIBIDO INCREASED [None]
  - DYSGEUSIA [None]
